FAERS Safety Report 11404252 (Version 1)
Quarter: 2015Q3

REPORT INFORMATION
  Report Type: Spontaneous
  Country: US (occurrence: US)
  Receive Date: 20150821
  Receipt Date: 20150821
  Transmission Date: 20151125
  Serious: Yes (Congenital Anomaly, Other)
  Sender: FDA-Public Use
  Company Number: US-GLAXOSMITHKLINE-US2015GSK118360

PATIENT
  Sex: Female

DRUGS (1)
  1. ZOFRAN [Suspect]
     Active Substance: ONDANSETRON HYDROCHLORIDE
     Indication: VOMITING IN PREGNANCY
     Dosage: UNK
     Route: 064

REACTIONS (6)
  - Coarctation of the aorta [Unknown]
  - Congenital coronary artery malformation [Unknown]
  - Cardiac septal defect [Unknown]
  - Heart valve incompetence [Unknown]
  - Double outlet right ventricle [Unknown]
  - Foetal exposure during pregnancy [Unknown]
